FAERS Safety Report 8096684-X (Version None)
Quarter: 2012Q1

REPORT INFORMATION
  Report Type: 
  Country: None (occurrence: None)
  Receive Date: 20120129
  Receipt Date: 20111201
  Transmission Date: 20120608
  Serious: No
  Sender: FDA-Public Use
  Company Number: US-ABBOTT-11P-163-0880259-00

PATIENT
  Age: 41 Year
  Sex: Female

DRUGS (12)
  1. PROBIOTIC [Concomitant]
     Indication: PRODUCT USED FOR UNKNOWN INDICATION
  2. PEPPERMINT OIL [Concomitant]
     Indication: PRODUCT USED FOR UNKNOWN INDICATION
  3. SOLODYN [Concomitant]
     Indication: ACNE
  4. MULTI-VITAMIN [Concomitant]
     Indication: PRODUCT USED FOR UNKNOWN INDICATION
  5. HUMIRA [Suspect]
     Indication: CROHN'S DISEASE
     Dates: start: 20111121
  6. IRON [Concomitant]
     Indication: ANAEMIA
  7. FOLIC ACID [Concomitant]
     Indication: PRODUCT USED FOR UNKNOWN INDICATION
  8. EFFEXOR XR [Concomitant]
     Indication: DEPRESSION
  9. VIT E [Concomitant]
     Indication: PRODUCT USED FOR UNKNOWN INDICATION
  10. VIT G [Concomitant]
     Indication: PRODUCT USED FOR UNKNOWN INDICATION
  11. ASACOL [Concomitant]
     Indication: PRODUCT USED FOR UNKNOWN INDICATION
  12. UNKNOWN MEDICATION [Concomitant]
     Indication: CROHN'S DISEASE

REACTIONS (1)
  - INJECTION SITE PAIN [None]
